FAERS Safety Report 12252850 (Version 1)
Quarter: 2016Q2

REPORT INFORMATION
  Report Type: Spontaneous
  Country: US (occurrence: None)
  Receive Date: 20160408
  Receipt Date: 20160408
  Transmission Date: 20160815
  Serious: Yes (Other)
  Sender: FDA-Public Use
  Company Number: None

PATIENT
  Age: 14 Year
  Sex: Female
  Weight: 52.16 kg

DRUGS (7)
  1. PRISTIQ EXTENDED-RELEASE [Concomitant]
     Active Substance: DESVENLAFAXINE SUCCINATE
  2. IVABRADINE [Concomitant]
     Active Substance: IVABRADINE
  3. XANAX [Concomitant]
     Active Substance: ALPRAZOLAM
  4. MODAFINIL. [Concomitant]
     Active Substance: MODAFINIL
  5. REGLAN [Concomitant]
     Active Substance: METOCLOPRAMIDE HYDROCHLORIDE
  6. SEROQUEL [Suspect]
     Active Substance: QUETIAPINE FUMARATE
     Indication: INSOMNIA
  7. CYMBALTA [Concomitant]
     Active Substance: DULOXETINE HYDROCHLORIDE

REACTIONS (3)
  - No therapeutic response [None]
  - Blood prolactin increased [None]
  - Galactorrhoea [None]

NARRATIVE: CASE EVENT DATE: 20101105
